FAERS Safety Report 10270183 (Version 1)
Quarter: 2014Q2

REPORT INFORMATION
  Report Type: Report from Study
  Country: GB (occurrence: None)
  Receive Date: 20140626
  Receipt Date: 20140626
  Transmission Date: 20141212
  Serious: Yes (Life-Threatening)
  Sender: FDA-Public Use
  Company Number: 2404241

PATIENT
  Age: 69 Year
  Sex: Male

DRUGS (7)
  1. EPIRUBICIN HYDROCHLORIDE [Suspect]
     Indication: GASTRIC CANCER
     Dosage: LAST DOSE PRIOR TO SAE:  95 MG, 03-JUL-2013 (UNKNOWN), INTRAVENOUS (NOT OTHERWISE SPECIFIED)? ?
     Route: 042
     Dates: start: 20130521
  2. CISPLATIN [Suspect]
     Indication: GASTRIC CANCER
     Dosage: LAST DOSE PRIOR TO SAE:  115 MG, 03-JUL-2013 (UNKNOWN), INTRAVENOUS (NOT OTHERWISE SPECIFIED)? ?
     Route: 042
     Dates: start: 20130521
  3. BEVACIZUMAB [Suspect]
     Indication: GASTRIC CANCER
     Dosage: LAST DOSE PRIOR TO SAE: 600 MG, 03-JUL-2013 (UNKNOWN), INTRAVENOUS (NOT OTHERWISE SPECIFIED)?
     Route: 042
     Dates: start: 20130521
  4. CAPECITABINE [Suspect]
     Indication: GASTRIC CANCER
     Dosage: LAST DOSE PRIOR TO SAE:  52500 MG, 03-JUL-2013 (UNKNOWN), ORAL
     Route: 048
     Dates: start: 20130521
  5. AMLODIPINE [Concomitant]
  6. BENDROFLUAZIDE [Concomitant]
  7. SIMVASTATIN [Concomitant]

REACTIONS (1)
  - Hypokalaemia [None]
